FAERS Safety Report 26019237 (Version 1)
Quarter: 2025Q4

REPORT INFORMATION
  Report Type: Report from Study
  Country: CN (occurrence: CN)
  Receive Date: 20251110
  Receipt Date: 20251110
  Transmission Date: 20260117
  Serious: Yes (Other)
  Sender: ROCHE
  Company Number: CN-ROCHE-10000426463

PATIENT

DRUGS (6)
  1. RITUXIMAB [Suspect]
     Active Substance: RITUXIMAB
     Indication: Encephalitis autoimmune
     Dosage: 600MG, DELIVERED AS 100 MG INTRAVENOUSLY ON DAY ONE AND 500 MG ON DAY TWO.
     Route: 042
  2. RITUXIMAB [Suspect]
     Active Substance: RITUXIMAB
     Dosage: INTRAVENOUS RE RTX AT 500 MG EVERY 6 MONTHS?FOR }/- 1 YEAR,
     Route: 042
  3. MYCOPHENOLATE MOFETIL [Suspect]
     Active Substance: MYCOPHENOLATE MOFETIL
     Indication: Encephalitis autoimmune
     Dosage: DAILY FOR }/- 1 YEAR.
     Route: 048
  4. EFGARTIGIMOD ALFA [Suspect]
     Active Substance: EFGARTIGIMOD ALFA
     Indication: Encephalitis autoimmune
     Route: 065
  5. AZATHIOPRINE [Suspect]
     Active Substance: AZATHIOPRINE
     Indication: Encephalitis autoimmune
     Dosage: 100 MG DAILY FOR }/- 1 YEAR,
     Route: 048
  6. CYCLOPHOSPHAMIDE [Suspect]
     Active Substance: CYCLOPHOSPHAMIDE
     Indication: Encephalitis autoimmune
     Dosage: EVERY 4 WEEKS
     Route: 042

REACTIONS (55)
  - Infusion site erythema [Unknown]
  - Infusion site pain [Unknown]
  - Infusion site swelling [Unknown]
  - Agitation [Unknown]
  - Anxiety [Unknown]
  - Abnormal behaviour [Unknown]
  - Seizure [Unknown]
  - Delirium [Unknown]
  - Depression [Unknown]
  - Dizziness [Unknown]
  - Hallucination [Unknown]
  - Headache [Unknown]
  - Sleep disorder [Unknown]
  - Impaired healing [Unknown]
  - Flushing [Unknown]
  - Erythema [Unknown]
  - Skin infection [Unknown]
  - Rash [Unknown]
  - Alopecia [Unknown]
  - Back pain [Unknown]
  - Muscle spasms [Unknown]
  - Muscular weakness [Unknown]
  - Osteonecrosis [Unknown]
  - Abdominal pain [Unknown]
  - Taste disorder [Unknown]
  - Dyspepsia [Unknown]
  - Diarrhoea [Unknown]
  - Gastrointestinal haemorrhage [Unknown]
  - Increased appetite [Unknown]
  - Nausea [Unknown]
  - Hepatic function abnormal [Unknown]
  - Palpitations [Unknown]
  - Hypertension [Unknown]
  - Venous thrombosis [Unknown]
  - Hypotension [Unknown]
  - Arrhythmia [Unknown]
  - Dyspnoea [Unknown]
  - Respiratory tract infection [Unknown]
  - Pollakiuria [Unknown]
  - Urinary tract infection [Unknown]
  - Cystitis [Unknown]
  - Leukocytosis [Unknown]
  - Electrolyte imbalance [Unknown]
  - Erectile dysfunction [Unknown]
  - Orchitis [Unknown]
  - Endometritis [Unknown]
  - Weight increased [Unknown]
  - Fatigue [Unknown]
  - Malaise [Unknown]
  - Hyperglycaemia [Unknown]
  - Intraocular pressure increased [Unknown]
  - Neoplasm malignant [Unknown]
  - Hepatitis [Unknown]
  - Cytopenia [Unknown]
  - Vomiting [Unknown]
